FAERS Safety Report 5324261-X (Version None)
Quarter: 2007Q2

REPORT INFORMATION
  Report Type: 
  Country: None (occurrence: None)
  Receive Date: 20070514
  Receipt Date: 20070502
  Transmission Date: 20071010
  Serious: Yes (Other)
  Sender: FDA-Public Use
  Company Number: DE-SHR-DE-2007-015977

PATIENT
  Age: 69 Year
  Sex: Female

DRUGS (4)
  1. MAGNEVIST [Suspect]
     Dosage: 24 ML, 1 DOSE
     Dates: start: 20051116, end: 20051116
  2. MAGNEVIST [Suspect]
     Dosage: 13 ML, 1 DOSE
     Dates: start: 20051111, end: 20051111
  3. MAGNEVIST [Suspect]
     Dosage: 34 ML, 1 DOSE
     Dates: start: 20050619, end: 20050619
  4. OMNISCAN [Suspect]
     Dosage: 32 ML, 1 DOSE
     Route: 042
     Dates: start: 20050704, end: 20050704

REACTIONS (1)
  - NEPHROGENIC FIBROSING DERMOPATHY [None]
